FAERS Safety Report 7831315-2 (Version None)
Quarter: 2011Q4

REPORT INFORMATION
  Report Type: 
  Country: None (occurrence: None)
  Receive Date: 20111021
  Receipt Date: 20111014
  Transmission Date: 20120403
  Serious: Yes (Disabling)
  Sender: FDA-Public Use
  Company Number: US-MERCK-1104USA02990

PATIENT
  Sex: Male

DRUGS (2)
  1. PROPECIA [Suspect]
     Indication: ANDROGENETIC ALOPECIA
     Route: 048
     Dates: start: 20060101
  2. PROPECIA [Suspect]
     Route: 048
     Dates: start: 20070106

REACTIONS (9)
  - DEPRESSION [None]
  - INCORRECT DOSE ADMINISTERED [None]
  - EMOTIONAL DISTRESS [None]
  - ERECTILE DYSFUNCTION [None]
  - FATIGUE [None]
  - DISTURBANCE IN ATTENTION [None]
  - ANXIETY [None]
  - AMNESIA [None]
  - SLUGGISHNESS [None]
